FAERS Safety Report 18433158 (Version 1)
Quarter: 2020Q4

REPORT INFORMATION
  Report Type: Spontaneous
  Country: US (occurrence: US)
  Receive Date: 20201028
  Receipt Date: 20201028
  Transmission Date: 20210114
  Serious: No
  Sender: FDA-Public Use
  Company Number: US-ACCORD-178570

PATIENT
  Sex: Male
  Weight: 80.29 kg

DRUGS (3)
  1. SPIRONOLACTONE. [Suspect]
     Active Substance: SPIRONOLACTONE
     Indication: PRODUCT USED FOR UNKNOWN INDICATION
     Dosage: 50 MG/TWICE A DAY
     Dates: start: 20200128
  2. FOLIC ACID. [Concomitant]
     Active Substance: FOLIC ACID
  3. FUROSEMIDE. [Concomitant]
     Active Substance: FUROSEMIDE

REACTIONS (3)
  - Product odour abnormal [Unknown]
  - Increased appetite [Not Recovered/Not Resolved]
  - Urine odour abnormal [Not Recovered/Not Resolved]
